FAERS Safety Report 22108357 (Version 1)
Quarter: 2023Q1

REPORT INFORMATION
  Report Type: Spontaneous
  Country: US (occurrence: None)
  Receive Date: 20230316
  Receipt Date: 20230316
  Transmission Date: 20230418
  Serious: Yes (Other)
  Sender: FDA-Public Use
  Company Number: None

PATIENT
  Age: 64 Year
  Sex: Male
  Weight: 88.2 kg

DRUGS (6)
  1. PAXLOVID [Suspect]
     Active Substance: NIRMATRELVIR\RITONAVIR
     Indication: SARS-CoV-2 test positive
     Dosage: OTHER QUANTITY : 30 TABLET(S);?FREQUENCY : TWICE A DAY;?
     Route: 048
     Dates: start: 20230302, end: 20230306
  2. Toprol xr 150mg daily [Concomitant]
  3. Rosuvstatin 1 daily 20mg [Concomitant]
  4. Low dose aspirin 1 daily [Concomitant]
  5. Vitamin D 1000m daily [Concomitant]
  6. Calcium 250mg daily [Concomitant]

REACTIONS (3)
  - SARS-CoV-2 test negative [None]
  - COVID-19 [None]
  - SARS-CoV-2 test positive [None]

NARRATIVE: CASE EVENT DATE: 20230316
